FAERS Safety Report 14023844 (Version 1)
Quarter: 2017Q3

REPORT INFORMATION
  Report Type: Spontaneous
  Country: US (occurrence: US)
  Receive Date: 20170929
  Receipt Date: 20170929
  Transmission Date: 20171128
  Serious: No
  Sender: FDA-Public Use
  Company Number: US-JUBILANT CADISTA PHARMACEUTICALS-2017JUB00299

PATIENT
  Sex: Female
  Weight: 68.27 kg

DRUGS (4)
  1. PREDNISONE. [Suspect]
     Active Substance: PREDNISONE
  2. TYVASO [Suspect]
     Active Substance: TREPROSTINIL
     Indication: PULMONARY ARTERIAL HYPERTENSION
     Dosage: 18-54 ?G, 4X/DAY
     Route: 055
     Dates: start: 2017
  3. DOXYCYCLINE. [Suspect]
     Active Substance: DOXYCYCLINE
  4. DILTIAZEM. [Concomitant]
     Active Substance: DILTIAZEM

REACTIONS (3)
  - Dyspepsia [Recovered/Resolved]
  - Ageusia [Unknown]
  - Throat irritation [Unknown]

NARRATIVE: CASE EVENT DATE: 2017
